FAERS Safety Report 4908955-3 (Version None)
Quarter: 2006Q1

REPORT INFORMATION
  Report Type: 
  Country: None (occurrence: None)
  Receive Date: 20060209
  Receipt Date: 20060130
  Transmission Date: 20060701
  Serious: Yes (Other)
  Sender: FDA-Public Use
  Company Number: 2006014682

PATIENT
  Sex: Female
  Weight: 58.9676 kg

DRUGS (4)
  1. BENADRYL [Suspect]
     Indication: HYPERSENSITIVITY
     Dosage: 4 TABLETS ONCE AT BEDTIME, ORAL
     Route: 048
     Dates: start: 19910101
  2. IRON (IRON) [Concomitant]
  3. ACETAMINOPHEN [Concomitant]
  4. VITAMINS (VITAMINS) [Concomitant]

REACTIONS (4)
  - DIARRHOEA [None]
  - GASTRIC DISORDER [None]
  - HEADACHE [None]
  - MALAISE [None]
